FAERS Safety Report 6017581-7 (Version None)
Quarter: 2008Q4

REPORT INFORMATION
  Report Type: 
  Country: None (occurrence: None)
  Receive Date: 20081223
  Receipt Date: 20081212
  Transmission Date: 20090506
  Serious: Yes (Other)
  Sender: FDA-Public Use
  Company Number: US-AMGEN-QUU308139

PATIENT
  Sex: Female
  Weight: 49.9 kg

DRUGS (2)
  1. ENBREL [Suspect]
     Indication: RHEUMATOID ARTHRITIS
     Route: 058
     Dates: start: 20080605
  2. METHOTREXATE [Concomitant]
     Route: 048
     Dates: start: 20080110

REACTIONS (4)
  - ABDOMINAL DISCOMFORT [None]
  - INJECTION SITE HAEMATOMA [None]
  - LOSS OF CONSCIOUSNESS [None]
  - NAUSEA [None]
